FAERS Safety Report 25636841 (Version 1)
Quarter: 2025Q3

REPORT INFORMATION
  Report Type: Spontaneous
  Country: GB (occurrence: GB)
  Receive Date: 20250804
  Receipt Date: 20250804
  Transmission Date: 20251021
  Serious: Yes (Other)
  Sender: ACCORD
  Company Number: None

PATIENT
  Age: 60 Year
  Sex: Female
  Weight: 48 kg

DRUGS (1)
  1. EZETIMIBE [Suspect]
     Active Substance: EZETIMIBE
     Indication: Blood cholesterol increased
     Dates: start: 20250602, end: 20250718

REACTIONS (3)
  - Dysuria [Recovered/Resolved]
  - Abdominal distension [Unknown]
  - Renal pain [Unknown]

NARRATIVE: CASE EVENT DATE: 20250602
